FAERS Safety Report 20885839 (Version 2)
Quarter: 2022Q3

REPORT INFORMATION
  Report Type: Spontaneous
  Country: US (occurrence: US)
  Receive Date: 20220527
  Receipt Date: 20220708
  Transmission Date: 20221027
  Serious: Yes (Hospitalization)
  Sender: FDA-Public Use
  Company Number: US-ELI_LILLY_AND_COMPANY-US202205007796

PATIENT
  Sex: Male
  Weight: 105.22 kg

DRUGS (2)
  1. HUMALOG [Suspect]
     Active Substance: INSULIN LISPRO
     Indication: Type 2 diabetes mellitus
     Dosage: UNK, UNKNOWN
     Route: 065
     Dates: start: 20211213
  2. HUMALOG [Suspect]
     Active Substance: INSULIN LISPRO
     Dosage: UNK, TID SLIDING SCALE
     Route: 058

REACTIONS (3)
  - Atrial fibrillation [Not Recovered/Not Resolved]
  - Myocardial infarction [Unknown]
  - Arrhythmia [Unknown]

NARRATIVE: CASE EVENT DATE: 20210101
